FAERS Safety Report 9045070 (Version 1)
Quarter: 2013Q1

REPORT INFORMATION
  Report Type: Report from Study
  Country: US (occurrence: US)
  Receive Date: 20130130
  Receipt Date: 20130130
  Transmission Date: 20140127
  Serious: No
  Sender: FDA-Public Use
  Company Number: US-ABBOTT-12P-163-0966775-00

PATIENT
  Sex: Male
  Weight: 90.8 kg

DRUGS (6)
  1. HUMIRA 40 MG/0.8 ML PEN [Suspect]
     Indication: PSORIATIC ARTHROPATHY
     Route: 058
     Dates: start: 200811, end: 201104
  2. HUMIRA 40 MG/0.8 ML PEN [Suspect]
     Indication: RHEUMATOID ARTHRITIS
     Route: 058
     Dates: start: 201108
  3. UNKNOWN MEDICATION [Concomitant]
     Indication: HYPERTENSION
  4. CELEBREX [Concomitant]
     Indication: RHEUMATOID ARTHRITIS
  5. ALLOPURINOL [Concomitant]
     Indication: GOUT
  6. COLTRAZINE [Concomitant]
     Indication: GOUT

REACTIONS (3)
  - Stress [Not Recovered/Not Resolved]
  - Psoriasis [Not Recovered/Not Resolved]
  - Nervousness [Not Recovered/Not Resolved]
